FAERS Safety Report 18339565 (Version 1)
Quarter: 2020Q4

REPORT INFORMATION
  Report Type: Spontaneous
  Country: DE (occurrence: DE)
  Receive Date: 20201002
  Receipt Date: 20201002
  Transmission Date: 20210113
  Serious: Yes (Hospitalization)
  Sender: FDA-Public Use
  Company Number: DE-SA-2020SA267292

PATIENT

DRUGS (8)
  1. METOPROLOL. [Concomitant]
     Active Substance: METOPROLOL
     Dosage: 23.75 MG, QD (47.5 MG, 0.5-0-0-0)
  2. HUMALOG MIX [Concomitant]
     Active Substance: INSULIN LISPRO
     Dosage: NK IE, 20-14-16-0
     Route: 058
  3. AMLODIPINE [Concomitant]
     Active Substance: AMLODIPINE BESYLATE
     Dosage: 5 MG, QD (5 MG, 0.5-0-0.5-0)
  4. HYDROCHLOROTHIAZIDE/IRBESARTAN [Suspect]
     Active Substance: HYDROCHLOROTHIAZIDE\IRBESARTAN
     Dosage: 1 DF, QD (12.5|150 MG, 1-0-0-0)
     Route: 065
  5. TORASEMIDE [Suspect]
     Active Substance: TORSEMIDE
     Dosage: 10 MG, QD (10 MG, 1-0-0-0)
     Route: 065
  6. LEVOTHYROXIN [Concomitant]
     Active Substance: LEVOTHYROXINE
     Dosage: UNK (125 ?G / 2 DAY, 1-0-0-0)
  7. LEVOTHYROXIN [Concomitant]
     Active Substance: LEVOTHYROXINE
     Dosage: 125 ?G / 2 DAY, 0.5-0-0-0
  8. HUMINSULIN BASAL [Concomitant]
     Active Substance: INSULIN HUMAN
     Dosage: NK IE, 8-0-0-18
     Route: 058

REACTIONS (2)
  - Renal function test abnormal [Unknown]
  - Condition aggravated [Unknown]
